FAERS Safety Report 20955945 (Version 1)
Quarter: 2022Q2

REPORT INFORMATION
  Report Type: Spontaneous
  Country: US (occurrence: US)
  Receive Date: 20220614
  Receipt Date: 20220614
  Transmission Date: 20220721
  Serious: Yes (Other)
  Sender: FDA-Public Use
  Company Number: US-INDIVIOR EUROPE LIMITED-INDV-134514-2022

PATIENT

DRUGS (3)
  1. SUBOXONE [Suspect]
     Active Substance: BUPRENORPHINE HYDROCHLORIDE\NALOXONE HYDROCHLORIDE
     Indication: Drug dependence
     Dosage: UNK
     Route: 065
  2. NICOTINE [Concomitant]
     Active Substance: NICOTINE
     Indication: Tobacco user
     Dosage: UNK, USED PATCH
     Route: 065
  3. NICOTINE [Concomitant]
     Active Substance: NICOTINE
     Dosage: UNK, USED POUCH
     Route: 065

REACTIONS (5)
  - Seizure [Not Recovered/Not Resolved]
  - Conversion disorder [Unknown]
  - Concussion [Recovered/Resolved]
  - Tooth avulsion [Recovered/Resolved]
  - Face injury [Unknown]
